FAERS Safety Report 6689057-5 (Version None)
Quarter: 2010Q2

REPORT INFORMATION
  Report Type: 
  Country: None (occurrence: None)
  Receive Date: 20100420
  Receipt Date: 20100406
  Transmission Date: 20101027
  Serious: Yes (Hospitalization)
  Sender: FDA-Public Use
  Company Number: AT-MEDIMMUNE-MEDI-0011084

PATIENT
  Age: 2 Month
  Sex: Male
  Weight: 6 kg

DRUGS (2)
  1. SYNAGIS [Suspect]
     Route: 030
     Dates: start: 20091028, end: 20091127
  2. SYNAGIS [Suspect]
     Route: 030
     Dates: start: 20100107, end: 20100304

REACTIONS (3)
  - BRONCHITIS [None]
  - INCORRECT DOSE ADMINISTERED [None]
  - PNEUMONIA [None]
